FAERS Safety Report 9049158 (Version 1)
Quarter: 2013Q1

REPORT INFORMATION
  Report Type: Spontaneous
  Country: US (occurrence: US)
  Receive Date: 20130205
  Receipt Date: 20130205
  Transmission Date: 20140127
  Serious: Yes (Hospitalization)
  Sender: FDA-Public Use
  Company Number: US-BAXTER-2013BAX003725

PATIENT
  Age: 16 None
  Sex: Female

DRUGS (3)
  1. DIANEAL PD2 [Suspect]
     Indication: PERITONEAL DIALYSIS
     Route: 033
     Dates: start: 20121004
  2. TUMS [Suspect]
     Indication: BLOOD CALCIUM DECREASED
     Route: 048
     Dates: end: 20130105
  3. CALCITROL [Suspect]
     Indication: BLOOD CALCIUM DECREASED
     Route: 048
     Dates: end: 20130105

REACTIONS (3)
  - Blood calcium increased [Recovered/Resolved]
  - Hypotension [Recovered/Resolved]
  - Blood calcium decreased [Recovered/Resolved]
